FAERS Safety Report 4771668-5 (Version None)
Quarter: 2005Q3

REPORT INFORMATION
  Report Type: 
  Country: None (occurrence: None)
  Receive Date: 20050912
  Receipt Date: 20050825
  Transmission Date: 20060218
  Serious: Yes (Other)
  Sender: FDA-Public Use
  Company Number: 050826-0000716

PATIENT
  Age: 32 Year
  Sex: Male
  Weight: 102.5129 kg

DRUGS (11)
  1. PANHEMATIN [Suspect]
     Indication: PORPHYRIA
     Dosage: 312 MG; QD; IV
     Route: 042
     Dates: start: 20050823, end: 20050824
  2. LEXAPRO [Concomitant]
  3. ALLEGRA [Concomitant]
  4. LORTAB [Concomitant]
  5. CIMETIDINE [Concomitant]
  6. COMPAZINE [Concomitant]
  7. CLARINEX [Concomitant]
  8. ATIVAN [Concomitant]
  9. ELAVIL [Concomitant]
  10. KLONOPIN [Concomitant]
  11. ZYRTEC [Concomitant]

REACTIONS (23)
  - BLOOD PRESSURE FLUCTUATION [None]
  - BODY TEMPERATURE INCREASED [None]
  - C-REACTIVE PROTEIN INCREASED [None]
  - CATHETER RELATED COMPLICATION [None]
  - CATHETER SITE ERYTHEMA [None]
  - CATHETER SITE HAEMORRHAGE [None]
  - CATHETER SITE INFECTION [None]
  - CATHETER SITE PAIN [None]
  - CATHETER SITE RELATED REACTION [None]
  - DIZZINESS [None]
  - DRUG ADMINISTRATION ERROR [None]
  - DRUG LEVEL DECREASED [None]
  - DYSPNOEA [None]
  - EYE PAIN [None]
  - FATIGUE [None]
  - FEELING HOT [None]
  - HEADACHE [None]
  - INFUSION SITE PHLEBITIS [None]
  - NAUSEA [None]
  - RED BLOOD CELL SEDIMENTATION RATE INCREASED [None]
  - SHOULDER PAIN [None]
  - SKIN DISCOLOURATION [None]
  - WRONG TECHNIQUE IN DRUG USAGE PROCESS [None]
